FAERS Safety Report 4523877-8 (Version None)
Quarter: 2004Q4

REPORT INFORMATION
  Report Type: 
  Country: None (occurrence: None)
  Receive Date: 20041209
  Receipt Date: 20041209
  Transmission Date: 20050328
  Serious: Yes (Disabling)
  Sender: FDA-Public Use
  Company Number: None

PATIENT
  Sex: Female
  Weight: 67.9488 kg

DRUGS (8)
  1. REYATAZ [Suspect]
     Dosage: 2 DAILY ORAL
     Route: 048
     Dates: start: 20040101, end: 20041208
  2. PRIMIDONE [Concomitant]
  3. L-THYROXINE [Concomitant]
  4. COMBIVIR [Concomitant]
  5. GABAPENTIN [Concomitant]
  6. BACTRIM [Concomitant]
  7. AMOXACILLIN [Concomitant]
  8. HYDROCODONE/APAP [Concomitant]

REACTIONS (1)
  - FAT TISSUE INCREASED [None]
